FAERS Safety Report 16258609 (Version 1)
Quarter: 2019Q2

REPORT INFORMATION
  Report Type: Report from Study
  Country: US (occurrence: US)
  Receive Date: 20190430
  Receipt Date: 20190430
  Transmission Date: 20190711
  Serious: No
  Sender: FDA-Public Use
  Company Number: PHEH2019US017977

PATIENT
  Age: 64 Year
  Sex: Male

DRUGS (1)
  1. COSENTYX [Suspect]
     Active Substance: SECUKINUMAB
     Indication: PSORIASIS
     Route: 065

REACTIONS (7)
  - Hypersensitivity [Unknown]
  - Diarrhoea [Unknown]
  - Cough [Unknown]
  - Influenza like illness [Recovering/Resolving]
  - Weight increased [Unknown]
  - Chills [Recovering/Resolving]
  - Macule [Unknown]
